FAERS Safety Report 8115133-6 (Version None)
Quarter: 2012Q1

REPORT INFORMATION
  Report Type: 
  Country: None (occurrence: None)
  Receive Date: 20120206
  Receipt Date: 20120124
  Transmission Date: 20120608
  Serious: Yes (Disabling, Other)
  Sender: FDA-Public Use
  Company Number: CA-UCBSA-018030

PATIENT
  Age: 57 Year
  Sex: Female
  Weight: 83 kg

DRUGS (4)
  1. CIMZIA [Suspect]
     Indication: RHEUMATOID ARTHRITIS
     Route: 058
     Dates: start: 20100429, end: 20100901
  2. INH [Concomitant]
     Indication: TUBERCULOSIS
     Route: 048
     Dates: start: 20100303
  3. PREDNISONE TAB [Concomitant]
     Indication: RHEUMATOID ARTHRITIS
     Route: 048
     Dates: start: 20000101
  4. PREDNISONE TAB [Concomitant]
     Indication: ADRENAL SUPPRESSION
     Route: 048
     Dates: start: 20000101

REACTIONS (1)
  - HERPES ZOSTER [None]
